FAERS Safety Report 7062471-4 (Version None)
Quarter: 2010Q4

REPORT INFORMATION
  Report Type: 
  Country: None (occurrence: None)
  Receive Date: 20101026
  Receipt Date: 20091106
  Transmission Date: 20110411
  Serious: No
  Sender: FDA-Public Use
  Company Number: US-PFIZER INC-2009276117

PATIENT
  Sex: Male
  Weight: 82.086 kg

DRUGS (4)
  1. LIPITOR [Suspect]
     Indication: BLOOD CHOLESTEROL INCREASED
     Dosage: 10 MG, 1X/DAY
     Route: 048
     Dates: start: 20000101
  2. ADVAIR DISKUS 100/50 [Concomitant]
     Dosage: UNK
  3. AVODART [Concomitant]
     Dosage: UNK
  4. PRILOSEC [Concomitant]
     Dosage: UNK

REACTIONS (3)
  - C-REACTIVE PROTEIN INCREASED [None]
  - CELLULITIS [None]
  - GOUT [None]
